FAERS Safety Report 5066710-0 (Version None)
Quarter: 2006Q3

REPORT INFORMATION
  Report Type: 
  Country: None (occurrence: None)
  Receive Date: 20060801
  Receipt Date: 20060727
  Transmission Date: 20061208
  Serious: Yes (Hospitalization)
  Sender: FDA-Public Use
  Company Number: IT-GLAXOSMITHKLINE-B0432696A

PATIENT
  Age: 84 Year
  Sex: Female

DRUGS (9)
  1. DIGOXIN [Suspect]
     Dosage: .25MG PER DAY
     Route: 048
     Dates: start: 20010630
  2. ASPIRIN [Concomitant]
     Dosage: 100MG PER DAY
     Route: 048
  3. FUROSEMIDE [Concomitant]
     Dosage: 250MG PER DAY
     Route: 048
  4. GLYCERYL TRINITRATE [Concomitant]
     Dosage: 5MG PER DAY
     Route: 062
  5. ISOSORBIDE DINITRATE [Concomitant]
     Indication: ANGINA PECTORIS
     Dosage: 5MG PER DAY
     Route: 060
  6. METHYLPREDNISOLONE [Concomitant]
     Indication: POLYMYALGIA RHEUMATICA
     Dosage: 6MG PER DAY
     Route: 048
  7. POTASSIUM CANRENOATE [Concomitant]
     Indication: HYPERTENSION
     Dosage: 100MG PER DAY
     Route: 048
  8. RABEPRAZOLE SODIUM [Concomitant]
     Dosage: 20MG PER DAY
     Route: 048
  9. THEOPHYLLINE [Concomitant]
     Dosage: 300MG PER DAY
     Route: 048

REACTIONS (3)
  - ATRIAL FIBRILLATION [None]
  - CHEST PAIN [None]
  - ELECTROCARDIOGRAM ST SEGMENT DEPRESSION [None]
